FAERS Safety Report 6816774-6 (Version None)
Quarter: 2010Q3

REPORT INFORMATION
  Report Type: 
  Country: None (occurrence: None)
  Receive Date: 20100706
  Receipt Date: 20100628
  Transmission Date: 20110219
  Serious: Yes (Hospitalization)
  Sender: FDA-Public Use
  Company Number: PHHY2010GR41770

PATIENT

DRUGS (2)
  1. STALEVO 100 [Suspect]
     Indication: PARKINSON'S DISEASE
     Dosage: 200/50/200 MG 5 TABLETS
  2. CHEMOTHERAPEUTICS NOS [Concomitant]
     Dosage: UNK

REACTIONS (1)
  - PYREXIA [None]
